FAERS Safety Report 9676265 (Version 1)
Quarter: 2013Q4

REPORT INFORMATION
  Report Type: Spontaneous
  Country: US (occurrence: US)
  Receive Date: 20131107
  Receipt Date: 20131107
  Transmission Date: 20140711
  Serious: No
  Sender: FDA-Public Use
  Company Number: US-ENDO PHARMACEUTICALS INC.-HCDA20120056

PATIENT
  Sex: Female
  Weight: 59.02 kg

DRUGS (1)
  1. HYDROCODONE/ACETAMINOPHEN 7.5MG/325MG [Suspect]
     Indication: PAIN
     Dosage: 22.5/975 MG
     Route: 048
     Dates: end: 20120708

REACTIONS (4)
  - Chest pain [Recovered/Resolved]
  - Abdominal pain upper [Recovered/Resolved]
  - Insomnia [Recovered/Resolved]
  - Drug screen negative [Recovered/Resolved]
